FAERS Safety Report 12657934 (Version 3)
Quarter: 2016Q3

REPORT INFORMATION
  Report Type: Report from Study
  Country: US (occurrence: US)
  Receive Date: 20160816
  Receipt Date: 20160928
  Transmission Date: 20161109
  Serious: Yes (Death, Hospitalization, Other)
  Sender: FDA-Public Use
  Company Number: US-GILEAD-2016-0228724

PATIENT
  Age: 79 Year
  Sex: Female

DRUGS (2)
  1. SYNTHROID [Concomitant]
     Active Substance: LEVOTHYROXINE SODIUM
  2. AMBRISENTAN [Suspect]
     Active Substance: AMBRISENTAN
     Indication: PULMONARY HYPERTENSION
     Dosage: 5 MG, QD
     Route: 065
     Dates: start: 20121213

REACTIONS (8)
  - Decubitus ulcer [Unknown]
  - Blood pressure abnormal [Unknown]
  - Asthenia [Recovered/Resolved]
  - Clostridium difficile infection [Unknown]
  - Dehydration [Recovered/Resolved]
  - Death [Fatal]
  - Urinary tract infection [Recovered/Resolved]
  - Dehydration [Unknown]

NARRATIVE: CASE EVENT DATE: 20160812
